FAERS Safety Report 8975295 (Version 1)
Quarter: 2012Q4

REPORT INFORMATION
  Report Type: 
  Country: US (occurrence: US)
  Receive Date: 20121219
  Receipt Date: 20121219
  Transmission Date: 20130627
  Serious: Yes (Hospitalization)
  Sender: FDA-Public Use
  Company Number: US-AMGEN-USASP2012073629

PATIENT
  Age: 82 Year
  Sex: Female

DRUGS (10)
  1. PROLIA [Suspect]
     Indication: OSTEOPOROSIS POSTMENOPAUSAL
     Dosage: UNK UNK, q6mo
     Dates: start: 201012, end: 201112
  2. ASPIRIN [Concomitant]
     Dosage: 81 mg, qd
  3. CALCIUM [Concomitant]
     Dosage: 2 DF, qd
  4. DILTIAZEM [Concomitant]
     Dosage: 60 mg, tid
  5. CLARITIN                           /00413701/ [Concomitant]
     Dosage: 2 DF, qd
  6. MULTIVITAMIN                       /00097801/ [Concomitant]
     Dosage: UNK
  7. PROTONIX [Concomitant]
     Dosage: 40 mg, qd
  8. PRAVASTATIN [Concomitant]
     Dosage: 80 mg, qd
  9. VITAMIN D /00107901/ [Concomitant]
     Dosage: 1000 mg, qd
  10. PHENOBARBITAL [Concomitant]
     Dosage: UNK UNK, prn

REACTIONS (3)
  - Pneumonia [Unknown]
  - Tooth fracture [Unknown]
  - Dysphagia [Unknown]
